FAERS Safety Report 8092778-3 (Version None)
Quarter: 2012Q1

REPORT INFORMATION
  Report Type: 
  Country: None (occurrence: None)
  Receive Date: 20120128
  Receipt Date: 20110815
  Transmission Date: 20120608
  Serious: No
  Sender: FDA-Public Use
  Company Number: US-ABBOTT-11P-163-0846216-00

PATIENT
  Sex: Female
  Weight: 93.978 kg

DRUGS (9)
  1. SPIRONOLACTONE [Concomitant]
     Indication: PRODUCT USED FOR UNKNOWN INDICATION
  2. AZATHIOPRINE [Concomitant]
     Indication: PRODUCT USED FOR UNKNOWN INDICATION
  3. LABETALOL HCL [Concomitant]
     Indication: PRODUCT USED FOR UNKNOWN INDICATION
  4. HUMIRA [Suspect]
     Indication: CROHN'S DISEASE
     Dates: start: 20110725
  5. POTASSIUM [Concomitant]
     Indication: PRODUCT USED FOR UNKNOWN INDICATION
  6. OMEPRAZOLE [Concomitant]
     Indication: PRODUCT USED FOR UNKNOWN INDICATION
  7. PENTASA [Concomitant]
     Indication: PRODUCT USED FOR UNKNOWN INDICATION
  8. D3 [Concomitant]
     Indication: PRODUCT USED FOR UNKNOWN INDICATION
  9. BUSPAR [Concomitant]
     Indication: PRODUCT USED FOR UNKNOWN INDICATION

REACTIONS (2)
  - VISION BLURRED [None]
  - BACK PAIN [None]
